FAERS Safety Report 23386591 (Version 1)
Quarter: 2024Q1

REPORT INFORMATION
  Report Type: Spontaneous
  Country: US (occurrence: US)
  Receive Date: 20240110
  Receipt Date: 20240110
  Transmission Date: 20240410
  Serious: No
  Sender: FDA-Public Use
  Company Number: US-BAUSCHBL-2024BNL000142

PATIENT
  Sex: Female

DRUGS (2)
  1. KETOTIFEN FUMARATE [Suspect]
     Active Substance: KETOTIFEN FUMARATE
     Indication: Hypersensitivity
     Dosage: 1 DROP IN EACH EYE IN THE MORNING AND EVENING, SINCE A LONG TIME
     Route: 047
  2. KETOTIFEN FUMARATE [Suspect]
     Active Substance: KETOTIFEN FUMARATE
     Dosage: 1 DROP IN EACH EYE IN THE MORNING AND EVENING
     Route: 047
     Dates: start: 20231226, end: 202401

REACTIONS (2)
  - Eye pain [Recovered/Resolved]
  - Product quality issue [Unknown]

NARRATIVE: CASE EVENT DATE: 20231226
